FAERS Safety Report 21495714 (Version 3)
Quarter: 2022Q4

REPORT INFORMATION
  Report Type: Spontaneous
  Country: AR (occurrence: AR)
  Receive Date: 20221022
  Receipt Date: 20221201
  Transmission Date: 20230113
  Serious: Yes (Hospitalization)
  Sender: FDA-Public Use
  Company Number: AR-PINTPH-29

PATIENT

DRUGS (3)
  1. NERLYNX [Suspect]
     Active Substance: NERATINIB
     Indication: HER2 positive breast cancer
     Dosage: 240 MG, DAILY
     Route: 048
     Dates: start: 20220513
  2. Losacor D 100 [Concomitant]
     Indication: Product used for unknown indication
     Dosage: UNK
  3. DEXAMETHASONE [Concomitant]
     Active Substance: DEXAMETHASONE
     Indication: Product used for unknown indication
     Dosage: DAILY DOSE: 8 MG
     Route: 065

REACTIONS (8)
  - Anaemia [Unknown]
  - Diarrhoea [Recovered/Resolved]
  - Product administration interrupted [Unknown]
  - Dehydration [Unknown]
  - Pain in extremity [Unknown]
  - Speech disorder [Unknown]
  - Walking disability [Unknown]
  - Mental status changes [Unknown]
